FAERS Safety Report 6169249-4 (Version None)
Quarter: 2009Q2

REPORT INFORMATION
  Report Type: 
  Country: None (occurrence: None)
  Receive Date: 20090424
  Receipt Date: 20090410
  Transmission Date: 20091009
  Serious: Yes (Death, Hospitalization)
  Sender: FDA-Public Use
  Company Number: 2008AL011981

PATIENT
  Age: 67 Year
  Sex: Male
  Weight: 81.6475 kg

DRUGS (30)
  1. DIGOXIN [Suspect]
     Dosage: 0.125MG, DAILY, PO
     Route: 048
     Dates: start: 20060101, end: 20090227
  2. VERAPAMIL [Concomitant]
  3. QUINAPRIL [Concomitant]
  4. FUROSEMIDE [Concomitant]
  5. LIPITOR [Concomitant]
  6. GABAPENTIN [Concomitant]
  7. POTASSIUM CHLORIDE [Concomitant]
  8. TOPROL-XL [Concomitant]
  9. PLAVIX [Concomitant]
  10. ATROVENT [Concomitant]
  11. PRILOSEC [Concomitant]
  12. NITROLINGUAL [Concomitant]
  13. ADVAIR HFA [Concomitant]
  14. FERROUS SULFATE TAB [Concomitant]
  15. ALBUTEROL [Concomitant]
  16. ACETAMINOPHEN AND HYDROCODONE BITARTRATE [Concomitant]
  17. PROAIR HFA [Concomitant]
  18. ISOSORBIDE, CLOPIDOGREL [Concomitant]
  19. COTRIM [Concomitant]
  20. METRONIDAZOLE [Concomitant]
  21. MAG-OXIDE [Concomitant]
  22. WARFARIN [Concomitant]
  23. METOPROLOL TARTRATE [Concomitant]
  24. FEXOFENADINE [Concomitant]
  25. METOLAZONE [Concomitant]
  26. AVELOX [Concomitant]
  27. AMOXICILLIN [Concomitant]
  28. PROVENTIL [Concomitant]
  29. GUAIFENEX [Concomitant]
  30. NITROGLYCERIN [Concomitant]

REACTIONS (14)
  - BRONCHOPNEUMONIA [None]
  - CARDIAC FAILURE CONGESTIVE [None]
  - CEREBROVASCULAR ACCIDENT [None]
  - CHRONIC OBSTRUCTIVE PULMONARY DISEASE [None]
  - CONDITION AGGRAVATED [None]
  - DIVERTICULUM [None]
  - EPISTAXIS [None]
  - HEART RATE IRREGULAR [None]
  - LARGE INTESTINAL HAEMORRHAGE [None]
  - MULTIPLE INJURIES [None]
  - OEDEMA PERIPHERAL [None]
  - PALPITATIONS [None]
  - RECTAL HAEMORRHAGE [None]
  - SPUTUM DISCOLOURED [None]
